FAERS Safety Report 23652425 (Version 1)
Quarter: 2024Q1

REPORT INFORMATION
  Report Type: Spontaneous
  Country: US (occurrence: None)
  Receive Date: 20240319
  Receipt Date: 20240319
  Transmission Date: 20240410
  Serious: Yes (Other)
  Sender: FDA-Public Use
  Company Number: None

PATIENT
  Age: 25 Year
  Sex: Male

DRUGS (12)
  1. ADEMPAS [Suspect]
     Active Substance: RIOCIGUAT
     Indication: Pulmonary hypertension
     Dosage: FREQUENCY : TWICE A DAY;?
     Route: 048
     Dates: start: 20210331
  2. OPSUMIT [Concomitant]
     Active Substance: MACITENTAN
  3. WARFARIN [Concomitant]
  4. SPIRONOLACTONE [Concomitant]
  5. FERROUS SULFATE [Concomitant]
  6. TORSEMIDE [Concomitant]
  7. CLEARLAX [Concomitant]
  8. SENNA [Concomitant]
  9. TYLENOL [Concomitant]
  10. ALBUTEROL HFA [Concomitant]
  11. ALLOPURINOL [Concomitant]
  12. COLCHICINE [Concomitant]

REACTIONS (1)
  - Musculoskeletal chest pain [None]

NARRATIVE: CASE EVENT DATE: 20240310
